FAERS Safety Report 12706062 (Version 4)
Quarter: 2018Q1

REPORT INFORMATION
  Report Type: Spontaneous
  Country: US (occurrence: US)
  Receive Date: 20160901
  Receipt Date: 20180129
  Transmission Date: 20180508
  Serious: Yes (Other)
  Sender: FDA-Public Use
  Company Number: US-JAZZ-2016-US-007808

PATIENT
  Sex: Female

DRUGS (37)
  1. BENADRYL [Concomitant]
     Active Substance: DIPHENHYDRAMINE HYDROCHLORIDE
  2. ADVAIR HFA [Concomitant]
     Active Substance: FLUTICASONE PROPIONATE\SALMETEROL XINAFOATE
  3. CALCIUM [Concomitant]
     Active Substance: CALCIUM
  4. COENZYME Q10 [Concomitant]
     Active Substance: UBIDECARENONE
  5. FUROSEMIDE. [Concomitant]
     Active Substance: FUROSEMIDE
  6. LEVOCETIRIZINE [Concomitant]
     Active Substance: LEVOCETIRIZINE
  7. NIFEDICAL XL [Concomitant]
     Active Substance: NIFEDIPINE
  8. PRISTIQ EXTENDED-RELEASE [Concomitant]
     Active Substance: DESVENLAFAXINE SUCCINATE
  9. QVAR [Concomitant]
     Active Substance: BECLOMETHASONE DIPROPIONATE
  10. SINGULAIR [Concomitant]
     Active Substance: MONTELUKAST SODIUM
  11. TRAVATAN [Concomitant]
     Active Substance: TRAVOPROST
  12. ZYRTEC [Concomitant]
     Active Substance: CETIRIZINE HYDROCHLORIDE
  13. ABILIFY [Concomitant]
     Active Substance: ARIPIPRAZOLE
  14. CLONAZEPAM. [Concomitant]
     Active Substance: CLONAZEPAM
  15. LANSOPRAZOLE. [Concomitant]
     Active Substance: LANSOPRAZOLE
  16. PROAIR HFA [Concomitant]
     Active Substance: ALBUTEROL SULFATE
  17. PROPRANOLOL [Concomitant]
     Active Substance: PROPRANOLOL HYDROCHLORIDE
  18. QNASL [Concomitant]
     Active Substance: BECLOMETHASONE DIPROPIONATE
  19. TIZANIDINE HCL [Concomitant]
     Active Substance: TIZANIDINE HYDROCHLORIDE
  20. KRILL OIL [Concomitant]
     Active Substance: DIETARY SUPPLEMENT
  21. XYREM [Suspect]
     Active Substance: SODIUM OXYBATE
     Indication: NARCOLEPSY
     Dosage: 4.5 G, BID
     Route: 048
     Dates: start: 201307
  22. XYREM [Suspect]
     Active Substance: SODIUM OXYBATE
     Indication: CATAPLEXY
  23. FERROUS SULFATE. [Concomitant]
     Active Substance: FERROUS SULFATE
  24. VITAMIN B12 [Concomitant]
     Active Substance: CYANOCOBALAMIN
  25. FLONASE [Concomitant]
     Active Substance: FLUTICASONE PROPIONATE
  26. CALCIUM CITRATE [Concomitant]
     Active Substance: CALCIUM CITRATE
  27. LOSARTAN POTASSIUM. [Concomitant]
     Active Substance: LOSARTAN POTASSIUM
  28. IBUPROFEN. [Concomitant]
     Active Substance: IBUPROFEN
  29. LEVOTHYROXINE. [Concomitant]
     Active Substance: LEVOTHYROXINE
  30. VITAMIN D3 [Concomitant]
     Active Substance: CHOLECALCIFEROL
  31. FEXOFENADINE HCL [Concomitant]
     Active Substance: FEXOFENADINE HYDROCHLORIDE
  32. ALLERGY [Concomitant]
     Active Substance: UNSPECIFIED INGREDIENT
  33. BIOTIN [Concomitant]
     Active Substance: BIOTIN
  34. LOPERAMIDE HCL [Concomitant]
     Active Substance: LOPERAMIDE HYDROCHLORIDE
  35. ADDERALL [Concomitant]
     Active Substance: AMPHETAMINE ASPARTATE\AMPHETAMINE SULFATE\DEXTROAMPHETAMINE SACCHARATE\DEXTROAMPHETAMINE SULFATE
  36. FOLIC ACID. [Concomitant]
     Active Substance: FOLIC ACID
  37. POTASSIUM CL [Concomitant]
     Active Substance: POTASSIUM CHLORIDE

REACTIONS (4)
  - Cataract [Recovering/Resolving]
  - Blood potassium decreased [Unknown]
  - Diarrhoea [Not Recovered/Not Resolved]
  - Pre-existing condition improved [Unknown]
